FAERS Safety Report 5061810-3 (Version None)
Quarter: 2006Q3

REPORT INFORMATION
  Report Type: 
  Country: None (occurrence: None)
  Receive Date: 20060703
  Receipt Date: 20060127
  Transmission Date: 20061208
  Serious: No
  Sender: FDA-Public Use
  Company Number: 2006S1000829

PATIENT
  Age: 23 Year
  Sex: Female
  Weight: 75.7507 kg

DRUGS (9)
  1. CLOZAPINE [Suspect]
     Indication: SCHIZOPHRENIA
     Dosage: 650 MG;HS;ORAL
     Route: 048
     Dates: start: 20031201
  2. VITAMINS NOS [Concomitant]
  3. FLUOXETINE [Concomitant]
  4. HYDROCHLORIDE [Concomitant]
  5. RISPERIDONE [Concomitant]
  6. TOPIRAMATE [Concomitant]
  7. DOCUSATE SODIUM [Concomitant]
  8. BUPROPION HCL [Concomitant]
  9. VALPROATE SODIUM [Concomitant]

REACTIONS (1)
  - GRANULOCYTOPENIA [None]
